FAERS Safety Report 6544113-7 (Version None)
Quarter: 2010Q1

REPORT INFORMATION
  Report Type: 
  Country: None (occurrence: None)
  Receive Date: 20100119
  Receipt Date: 20100119
  Transmission Date: 20100710
  Serious: Yes (Life-Threatening)
  Sender: FDA-Public Use
  Company Number: None

PATIENT
  Age: 37 Year
  Sex: Male
  Weight: 104.3273 kg

DRUGS (2)
  1. PERCOCET [Suspect]
     Indication: TOOTH EXTRACTION
     Dates: start: 20091210, end: 20091212
  2. PERCOCET [Suspect]
     Indication: TOOTH EXTRACTION
     Dates: start: 20091212, end: 20091212

REACTIONS (2)
  - HAEMATEMESIS [None]
  - MALAISE [None]
